FAERS Safety Report 10497722 (Version 1)
Quarter: 2014Q4

REPORT INFORMATION
  Report Type: Spontaneous
  Country: GB (occurrence: None)
  Receive Date: 20141002
  Receipt Date: 20141002
  Transmission Date: 20150528
  Serious: Yes (Life-Threatening)
  Sender: FDA-Public Use
  Company Number: PI-10682

PATIENT
  Age: 74 Year
  Sex: Male
  Weight: 80 kg

DRUGS (9)
  1. OCTREOTIDE [Concomitant]
     Active Substance: OCTREOTIDE
  2. SIMVASTATIN. [Concomitant]
     Active Substance: SIMVASTATIN
  3. CHLORAPREP [Suspect]
     Active Substance: CHLORHEXIDINE GLUCONATE\ISOPROPYL ALCOHOL
     Indication: PREOPERATIVE CARE
     Route: 061
     Dates: start: 20140212
  4. AMLODIPINE [Concomitant]
     Active Substance: AMLODIPINE BESYLATE
  5. RAMIPRIL. [Concomitant]
     Active Substance: RAMIPRIL
  6. DALTEPARIN [Concomitant]
     Active Substance: DALTEPARIN
  7. OMEPRAZOLE. [Concomitant]
     Active Substance: OMEPRAZOLE
  8. INDAPAMIDE. [Concomitant]
     Active Substance: INDAPAMIDE
  9. SAVLON [Concomitant]

REACTIONS (1)
  - Anaphylactic reaction [None]

NARRATIVE: CASE EVENT DATE: 20140212
